FAERS Safety Report 16928064 (Version 1)
Quarter: 2019Q4

REPORT INFORMATION
  Report Type: Spontaneous
  Country: US (occurrence: US)
  Receive Date: 20191017
  Receipt Date: 20191017
  Transmission Date: 20200122
  Serious: Yes (Other)
  Sender: FDA-Public Use
  Company Number: US-STRIDES ARCOLAB LIMITED-2019SP009520

PATIENT
  Age: 41 Year
  Sex: Male

DRUGS (10)
  1. AZATHIOPRINE. [Suspect]
     Active Substance: AZATHIOPRINE
     Indication: TRANSPLANT
     Dosage: 100 MILLIGRAM, DAILY
     Route: 065
  2. SIROLIMUS. [Suspect]
     Active Substance: SIROLIMUS
     Indication: TRANSPLANT
  3. BASILIXIMAB [Suspect]
     Active Substance: BASILIXIMAB
     Indication: IMMUNOSUPPRESSANT DRUG THERAPY
     Dosage: 20 MILLIGRAM, EVERY TWO MONTHS
     Route: 042
  4. TACROLIMUS. [Suspect]
     Active Substance: TACROLIMUS
     Indication: IMMUNOSUPPRESSANT DRUG THERAPY
     Dosage: 6 MILLIGRAM, DAILY
     Route: 065
  5. PREDNISOLONE. [Suspect]
     Active Substance: PREDNISOLONE
     Indication: IMMUNOSUPPRESSANT DRUG THERAPY
     Dosage: 10 MILLIGRAM, DAILY (PRIOR GRAFT)
     Route: 065
  6. PREDNISOLONE. [Suspect]
     Active Substance: PREDNISOLONE
     Indication: TRANSPLANT
     Dosage: 10 MILLIGRAM, DAILY
     Route: 065
  7. SIROLIMUS. [Suspect]
     Active Substance: SIROLIMUS
     Indication: IMMUNOSUPPRESSANT DRUG THERAPY
     Dosage: 3 MILLIGRAM, DAILY
     Route: 065
  8. BASILIXIMAB [Suspect]
     Active Substance: BASILIXIMAB
     Indication: TRANSPLANT
  9. TACROLIMUS. [Suspect]
     Active Substance: TACROLIMUS
     Indication: TRANSPLANT
     Dosage: 5 MILLIGRAM, DAILY
     Route: 065
  10. AZATHIOPRINE. [Suspect]
     Active Substance: AZATHIOPRINE
     Indication: IMMUNOSUPPRESSANT DRUG THERAPY

REACTIONS (3)
  - Off label use [Unknown]
  - Colon adenoma [Unknown]
  - Large intestine polyp [Unknown]
